FAERS Safety Report 19713300 (Version 1)
Quarter: 2021Q3

REPORT INFORMATION
  Report Type: Report from Study
  Country: US (occurrence: US)
  Receive Date: 20210817
  Receipt Date: 20210817
  Transmission Date: 20211014
  Serious: Yes (Other)
  Sender: FDA-Public Use
  Company Number: US-JAZZ-2017-US-013853

PATIENT
  Sex: Female
  Weight: 78.91 kg

DRUGS (2)
  1. XYREM [Suspect]
     Active Substance: SODIUM OXYBATE
     Indication: NARCOLEPSY
     Dosage: 2.25 G, BID
     Route: 048
     Dates: start: 201710
  2. XYREM [Suspect]
     Active Substance: SODIUM OXYBATE
     Indication: CATAPLEXY
     Dosage: 4.5 GRAM, BID
     Route: 048

REACTIONS (13)
  - Weight decreased [Unknown]
  - Nausea [Not Recovered/Not Resolved]
  - Feeling drunk [Unknown]
  - Joint swelling [Recovered/Resolved]
  - Dizziness [Not Recovered/Not Resolved]
  - Product preparation error [Unknown]
  - Weight increased [Recovering/Resolving]
  - Pain in extremity [Not Recovered/Not Resolved]
  - Pollakiuria [Unknown]
  - Peripheral swelling [Unknown]
  - Paraesthesia [Not Recovered/Not Resolved]
  - Poor quality sleep [Unknown]
  - Vomiting [Unknown]

NARRATIVE: CASE EVENT DATE: 2017
